FAERS Safety Report 22218198 (Version 1)
Quarter: 2023Q2

REPORT INFORMATION
  Report Type: Spontaneous
  Country: US (occurrence: US)
  Receive Date: 20230417
  Receipt Date: 20230417
  Transmission Date: 20230721
  Serious: No
  Sender: FDA-Public Use
  Company Number: US-drreddys-SPO/USA/23/0163431

PATIENT
  Age: 66 Year

DRUGS (1)
  1. ZOLEDRONIC ACID [Suspect]
     Active Substance: ZOLEDRONIC ACID
     Indication: Osteoporosis
     Dosage: 5 MG/100ML
     Dates: end: 20230327

REACTIONS (3)
  - Pain [Unknown]
  - Dyspnoea [Unknown]
  - Angioedema [Unknown]
